FAERS Safety Report 23215222 (Version 1)
Quarter: 2023Q4

REPORT INFORMATION
  Report Type: Spontaneous
  Country: US (occurrence: US)
  Receive Date: 20231122
  Receipt Date: 20231122
  Transmission Date: 20240110
  Serious: No
  Sender: FDA-Public Use
  Company Number: US-drreddys-SPO/USA/23/0182777

PATIENT
  Age: 20 Year

DRUGS (1)
  1. ACCUTANE [Suspect]
     Active Substance: ISOTRETINOIN
     Indication: Product used for unknown indication

REACTIONS (8)
  - Skin mass [Unknown]
  - Neurodermatitis [Unknown]
  - Skin lesion [Unknown]
  - Xerosis [Unknown]
  - Epistaxis [Unknown]
  - Rash [Unknown]
  - Cheilitis [Unknown]
  - Pruritus [Unknown]

NARRATIVE: CASE EVENT DATE: 20230728
